FAERS Safety Report 10883538 (Version 1)
Quarter: 2015Q1

REPORT INFORMATION
  Report Type: Spontaneous
  Country: US (occurrence: US)
  Receive Date: 20150303
  Receipt Date: 20150303
  Transmission Date: 20150721
  Serious: No
  Sender: FDA-Public Use
  Company Number: US-ELI_LILLY_AND_COMPANY-US201311005813

PATIENT
  Sex: Female

DRUGS (3)
  1. FORTEO [Suspect]
     Active Substance: TERIPARATIDE
     Indication: OSTEOPOROSIS
     Dosage: UNK UNK, QD
     Route: 065
     Dates: start: 201308
  2. ATENOLOL. [Concomitant]
     Active Substance: ATENOLOL
  3. FORTEO [Suspect]
     Active Substance: TERIPARATIDE
     Dosage: UNK, QD

REACTIONS (9)
  - Skin irritation [Unknown]
  - Asthenia [Unknown]
  - Nausea [Unknown]
  - Fall [Unknown]
  - Medication error [Unknown]
  - Muscular weakness [Unknown]
  - Dizziness [Unknown]
  - Drug dose omission [Unknown]
  - Underdose [Unknown]
